FAERS Safety Report 9466786 (Version 1)
Quarter: 2013Q3

REPORT INFORMATION
  Report Type: Spontaneous
  Country: US (occurrence: US)
  Receive Date: 20130820
  Receipt Date: 20130820
  Transmission Date: 20140515
  Serious: No
  Sender: FDA-Public Use
  Company Number: US-PFIZER INC-2013237270

PATIENT
  Age: 74 Year
  Sex: Male
  Weight: 70.3 kg

DRUGS (3)
  1. BOSULIF [Suspect]
     Indication: LEUKAEMIA
     Dosage: 500 MG, 1X/DAY
     Route: 048
     Dates: start: 201304
  2. IMDUR [Concomitant]
     Indication: HYPERTENSION
     Dosage: UNK
  3. LOPRESSOR [Concomitant]
     Indication: HYPERTENSION
     Dosage: UNK

REACTIONS (1)
  - Headache [Not Recovered/Not Resolved]
